FAERS Safety Report 6395546-3 (Version None)
Quarter: 2009Q4

REPORT INFORMATION
  Report Type: 
  Country: None (occurrence: None)
  Receive Date: 20091009
  Receipt Date: 20090929
  Transmission Date: 20100525
  Serious: Yes (Hospitalization)
  Sender: FDA-Public Use
  Company Number: US-PFIZER INC-2009277134

PATIENT
  Sex: Male

DRUGS (1)
  1. GEODON [Suspect]
     Dates: start: 20090101, end: 20090101

REACTIONS (1)
  - ANAPHYLACTIC SHOCK [None]
